FAERS Safety Report 19027251 (Version 1)
Quarter: 2021Q1

REPORT INFORMATION
  Report Type: Spontaneous
  Country: US (occurrence: US)
  Receive Date: 20210318
  Receipt Date: 20210318
  Transmission Date: 20210420
  Serious: Yes (Death, Congenital Anomaly, Other)
  Sender: FDA-Public Use
  Company Number: US-ALLERGAN-2110815US

PATIENT
  Sex: Male
  Weight: 7.71 kg

DRUGS (4)
  1. LEXAPRO [Suspect]
     Active Substance: ESCITALOPRAM OXALATE
     Indication: EXPOSURE DURING PREGNANCY
     Dosage: UNK
  2. SEROQUEL [Suspect]
     Active Substance: QUETIAPINE FUMARATE
     Indication: EXPOSURE DURING PREGNANCY
     Dosage: UNK
  3. WELLBUTRIN [Suspect]
     Active Substance: BUPROPION HYDROCHLORIDE
     Indication: EXPOSURE DURING PREGNANCY
     Dosage: UNK
  4. METFORMIN [Suspect]
     Active Substance: METFORMIN HYDROCHLORIDE
     Indication: EXPOSURE DURING PREGNANCY

REACTIONS (19)
  - Premature baby [Unknown]
  - Congenital hydrocephalus [Unknown]
  - Hypospadias [Unknown]
  - Cerebral dysgenesis [Unknown]
  - Bradycardia neonatal [Unknown]
  - Trismus [Unknown]
  - Multiple congenital abnormalities [Unknown]
  - Anomaly of external ear congenital [Unknown]
  - Respiratory distress [Unknown]
  - Joint ankylosis [Unknown]
  - Congenital anomaly of inner ear [Unknown]
  - Anomaly of middle ear congenital [Unknown]
  - Deafness bilateral [Unknown]
  - Micrognathia [Unknown]
  - Microtia [Unknown]
  - Death [Fatal]
  - Dandy-Walker syndrome [Unknown]
  - Pregnancy [Unknown]
  - External auditory canal atresia [Unknown]
